FAERS Safety Report 7412047-1 (Version None)
Quarter: 2011Q2

REPORT INFORMATION
  Report Type: 
  Country: None (occurrence: None)
  Receive Date: 20110413
  Receipt Date: 20110212
  Transmission Date: 20111010
  Serious: Yes (Other)
  Sender: FDA-Public Use
  Company Number: CN-CELGENEUS-035-20785-11022009

PATIENT

DRUGS (6)
  1. CISPLATIN [Concomitant]
     Dosage: 20 MILLIGRAM/SQ. METER
     Route: 065
  2. THALIDOMIDE [Suspect]
     Dosage: 100 MILLIGRAM
     Route: 048
  3. METOCLOPRAMIDE [Concomitant]
     Indication: VOMITING
     Route: 065
  4. THALIDOMIDE [Suspect]
     Dosage: 200MG AT BEDTIME DAILY SINCE WEEK-2 UNTIL THE END OF RADIATION
     Route: 048
  5. FLUOROURACIL [Concomitant]
     Dosage: 500MG/M2 CONTINUOUSLY FOR 5 DAYS FOR 2 PHASE - WEEK 1 + WEEK-4 RESPECTIVELY
     Route: 041
  6. ONDANSETRON [Concomitant]
     Indication: VOMITING
     Route: 065

REACTIONS (15)
  - LIVER DISORDER [None]
  - THROMBOSIS [None]
  - THROMBOCYTOPENIA [None]
  - SOMNOLENCE [None]
  - HAEMOGLOBIN DECREASED [None]
  - RENAL IMPAIRMENT [None]
  - RASH [None]
  - LEUKOPENIA [None]
  - RADIATION SKIN INJURY [None]
  - NAUSEA [None]
  - VOMITING [None]
  - RADIATION OESOPHAGITIS [None]
  - HEADACHE [None]
  - CONSTIPATION [None]
  - FATIGUE [None]
